FAERS Safety Report 16693159 (Version 1)
Quarter: 2019Q3

REPORT INFORMATION
  Report Type: Spontaneous
  Country: NL (occurrence: NL)
  Receive Date: 20190812
  Receipt Date: 20190812
  Transmission Date: 20191004
  Serious: Yes (Hospitalization, Other)
  Sender: FDA-Public Use
  Company Number: NL-009507513-1908NLD003786

PATIENT
  Age: 89 Year
  Sex: Female

DRUGS (5)
  1. THYRAX [Suspect]
     Active Substance: LEVOTHYROXINE
  2. COZAAR [Suspect]
     Active Substance: LOSARTAN POTASSIUM
     Indication: SYSTOLIC HYPERTENSION
     Dosage: UNK
     Route: 048
  3. EZETROL [Suspect]
     Active Substance: EZETIMIBE
     Dosage: UNK
     Route: 048
  4. ZOCOR [Suspect]
     Active Substance: SIMVASTATIN
     Dosage: UNK
     Route: 048
  5. CALCICHEW [Suspect]
     Active Substance: CALCIUM CARBONATE

REACTIONS (19)
  - Diarrhoea [Unknown]
  - Hepatic steatosis [Unknown]
  - Dyschezia [Unknown]
  - Vomiting [Unknown]
  - Flatulence [Unknown]
  - Oedematous pancreatitis [Unknown]
  - Pancreatitis acute [Unknown]
  - Nystagmus [Unknown]
  - Cerebral artery embolism [Unknown]
  - Mucous stools [Unknown]
  - Pancreatic steatosis [Unknown]
  - Balance disorder [Unknown]
  - Faeces discoloured [Unknown]
  - Abdominal pain upper [Unknown]
  - Gastric ulcer haemorrhage [Unknown]
  - Eructation [Unknown]
  - Gastrointestinal motility disorder [Unknown]
  - Steatorrhoea [Unknown]
  - Hyperglycaemia [Unknown]

NARRATIVE: CASE EVENT DATE: 2018
